FAERS Safety Report 9467239 (Version 1)
Quarter: 2013Q3

REPORT INFORMATION
  Report Type: Spontaneous
  Country: DE (occurrence: DE)
  Receive Date: 20130821
  Receipt Date: 20130821
  Transmission Date: 20140515
  Serious: Yes (Hospitalization)
  Sender: FDA-Public Use
  Company Number: DE-BIOGENIDEC-2013BI077609

PATIENT
  Age: 34 Year
  Sex: Male
  Weight: 87 kg

DRUGS (2)
  1. AVONEX [Suspect]
     Indication: MULTIPLE SCLEROSIS
     Route: 030
     Dates: start: 20120801, end: 201306
  2. PARACETAMOL [Concomitant]
     Indication: INFLUENZA LIKE ILLNESS
     Dates: start: 20120801, end: 201306

REACTIONS (2)
  - Raynaud^s phenomenon [Not Recovered/Not Resolved]
  - Scleroderma [Not Recovered/Not Resolved]
